FAERS Safety Report 15878206 (Version 2)
Quarter: 2019Q1

REPORT INFORMATION
  Report Type: Spontaneous
  Country: US (occurrence: US)
  Receive Date: 20190128
  Receipt Date: 20190312
  Transmission Date: 20190417
  Serious: No
  Sender: FDA-Public Use
  Company Number: US-PFIZER INC-2019036460

PATIENT
  Age: 82 Year

DRUGS (3)
  1. TRICOR [ADENOSINE] [Suspect]
     Active Substance: ADENOSINE
     Indication: HYPERCHOLESTEROLAEMIA
     Dosage: 145 MG, UNK
     Route: 048
     Dates: start: 20081006, end: 20091014
  2. LIPITOR [Suspect]
     Active Substance: ATORVASTATIN CALCIUM
     Indication: HYPERCHOLESTEROLAEMIA
     Dosage: UNK, DAILY
     Route: 048
  3. ZETRIC [Concomitant]
     Dosage: UNK

REACTIONS (1)
  - Myalgia [Recovered/Resolved]
